FAERS Safety Report 5444403-5 (Version None)
Quarter: 2007Q3

REPORT INFORMATION
  Report Type: 
  Country: None (occurrence: None)
  Receive Date: 20070831
  Receipt Date: 20070817
  Transmission Date: 20080115
  Serious: Yes (Hospitalization, Other)
  Sender: FDA-Public Use
  Company Number: 2007BI017672

PATIENT
  Age: 20 Year
  Sex: Female
  Weight: 60 kg

DRUGS (1)
  1. NATALIZUMAB (NATALIZUMAB) [Suspect]
     Indication: MULTIPLE SCLEROSIS
     Dosage: 300 MG; QM; IV
     Route: 042
     Dates: start: 20061219

REACTIONS (7)
  - FATIGUE [None]
  - HAEMATOMA [None]
  - HEADACHE [None]
  - MALAISE [None]
  - NAUSEA [None]
  - ORAL HERPES [None]
  - SKIN DISCOLOURATION [None]
